FAERS Safety Report 25419155 (Version 1)
Quarter: 2025Q2

REPORT INFORMATION
  Report Type: Spontaneous
  Country: US (occurrence: US)
  Receive Date: 20250610
  Receipt Date: 20250610
  Transmission Date: 20250717
  Serious: Yes (Other)
  Sender: BAUSCH AND LOMB
  Company Number: US-BAUSCH-BL-2025-006979

PATIENT
  Sex: Female

DRUGS (6)
  1. NIFEDIPINE [Suspect]
     Active Substance: NIFEDIPINE
     Indication: Pre-eclampsia
     Route: 065
  2. HYDROCORTISONE [Suspect]
     Active Substance: HYDROCORTISONE
     Indication: Oedema
     Route: 065
  3. IRON DEXTRAN [Suspect]
     Active Substance: IRON DEXTRAN
     Indication: Iron deficiency anaemia
     Route: 065
  4. BENADRYL [Suspect]
     Active Substance: DIPHENHYDRAMINE HYDROCHLORIDE
     Indication: Oedema
     Route: 042
  5. SUCCINYLCHOLINE [Suspect]
     Active Substance: SUCCINYLCHOLINE
     Indication: Product used for unknown indication
     Route: 065
  6. FERRIC GLUCONATE TRIHYDRATE [Suspect]
     Active Substance: FERRIC GLUCONATE TRIHYDRATE
     Indication: Iron deficiency anaemia
     Route: 042

REACTIONS (3)
  - Hypotension [Unknown]
  - Drug hypersensitivity [Unknown]
  - Maternal exposure during pregnancy [Unknown]
